FAERS Safety Report 22968146 (Version 3)
Quarter: 2024Q3

REPORT INFORMATION
  Report Type: Spontaneous
  Country: CN (occurrence: CN)
  Receive Date: 20230921
  Receipt Date: 20240814
  Transmission Date: 20241017
  Serious: Yes (Other)
  Sender: VIIV
  Company Number: CN-VIIV HEALTHCARE LIMITED-CN2023APC127057

PATIENT

DRUGS (2)
  1. TIVICAY [Suspect]
     Active Substance: DOLUTEGRAVIR SODIUM
     Indication: Prophylaxis against HIV infection
     Dosage: 1 DF, QD
     Route: 048
     Dates: start: 20230827
  2. TRUVADA [Suspect]
     Active Substance: EMTRICITABINE\TENOFOVIR DISOPROXIL FUMARATE
     Indication: Prophylaxis against HIV infection
     Dosage: 1 DF, QD
     Route: 048
     Dates: start: 20230827

REACTIONS (3)
  - Muscle hypertrophy [Recovering/Resolving]
  - Off label use [Not Recovered/Not Resolved]
  - Extra dose administered [Recovered/Resolved]

NARRATIVE: CASE EVENT DATE: 20230827
